FAERS Safety Report 7497002-8 (Version None)
Quarter: 2011Q2

REPORT INFORMATION
  Report Type: 
  Country: None (occurrence: None)
  Receive Date: 20110523
  Receipt Date: 20110510
  Transmission Date: 20111010
  Serious: Yes (Life-Threatening)
  Sender: FDA-Public Use
  Company Number: US-JNJFOC-20110506251

PATIENT
  Age: 48 Year
  Sex: Female

DRUGS (2)
  1. ORTHO-NOVUM 7/7/7-21 [Suspect]
     Indication: OVARIAN CYST RUPTURED
     Dosage: NORETHINDRONE 0.5, 0.75 AND 1.0 MG EACH FOR 7 DAYS PLUS ETHINYL ESTRADIOL 35 UG
     Route: 048
  2. ORTHO-NOVUM 7/7/7-21 [Suspect]
     Indication: MENSTRUATION IRREGULAR
     Dosage: NORETHINDRONE 0.5, 0.75 AND 1.0 MG EACH FOR 7 DAYS PLUS ETHINYL ESTRADIOL 35 UG
     Route: 048

REACTIONS (3)
  - OFF LABEL USE [None]
  - DERMATITIS [None]
  - ANAPHYLACTIC REACTION [None]
